FAERS Safety Report 19924718 (Version 1)
Quarter: 2021Q4

REPORT INFORMATION
  Report Type: Report from Study
  Country: FR (occurrence: FR)
  Receive Date: 20211006
  Receipt Date: 20211006
  Transmission Date: 20220303
  Serious: Yes (Life-Threatening, Hospitalization, Other)
  Sender: FDA-Public Use
  Company Number: FR-CELGENE-FRA-20210300466

PATIENT
  Age: 70 Year
  Sex: Male

DRUGS (18)
  1. GEMCITABINE [Suspect]
     Active Substance: GEMCITABINE
     Indication: Ductal adenocarcinoma of pancreas
     Dosage: 600 MILLIGRAM/SQ. METER
     Route: 042
     Dates: start: 20190618, end: 20200122
  2. GEMCITABINE [Suspect]
     Active Substance: GEMCITABINE
     Dosage: UNK
     Route: 042
     Dates: start: 20200219
  3. GEMCITABINE [Suspect]
     Active Substance: GEMCITABINE
     Dosage: UNK
     Route: 042
     Dates: start: 20200226
  4. GEMCITABINE [Suspect]
     Active Substance: GEMCITABINE
     Dosage: 600 MILLIGRAM/SQ. METER
     Route: 065
     Dates: start: 20190618, end: 20200122
  5. ABRAXANE [Suspect]
     Active Substance: PACLITAXEL
     Indication: Ductal adenocarcinoma of pancreas
     Dosage: 100 MILLIGRAM/SQ. METER
     Route: 042
     Dates: start: 20190618, end: 20200122
  6. ABRAXANE [Suspect]
     Active Substance: PACLITAXEL
     Dosage: UNK
     Route: 042
     Dates: start: 20200219
  7. ABRAXANE [Suspect]
     Active Substance: PACLITAXEL
     Dosage: 125 MILLIGRAM/SQ. METER
     Route: 042
     Dates: start: 20190618, end: 20200122
  8. ASPARAGINASE [Suspect]
     Active Substance: ASPARAGINASE
     Indication: Ductal adenocarcinoma of pancreas
     Dosage: 100 MICROGRAM/KILOGRAM
     Route: 042
     Dates: start: 20190618, end: 20191226
  9. ASPARAGINASE [Suspect]
     Active Substance: ASPARAGINASE
     Dosage: UNK
     Dates: start: 20200219
  10. PANCRELIPASE [Concomitant]
     Active Substance: PANCRELIPASE
     Indication: Pancreatic failure
     Dosage: 400000 IU (INTERNATIONAL UNIT)
     Route: 048
     Dates: start: 201811
  11. PANCRELIPASE [Concomitant]
     Active Substance: PANCRELIPASE
     Dosage: 100000 INTERNATIONAL UNIT, QD (25000 IU, QID)
     Route: 048
     Dates: start: 201811
  12. VALSARTAN [Concomitant]
     Active Substance: VALSARTAN
     Indication: Hypertension
     Dosage: 80 MILLIGRAM, QD (80 MILLIGRAM)
     Route: 048
     Dates: start: 201601
  13. PENICILLIN V [Concomitant]
     Active Substance: PENICILLIN V
     Indication: Prophylaxis
     Dosage: 2 UNK, QD (10000000 FOR TWO YEARS)
     Route: 048
     Dates: start: 201901
  14. PENICILLIN V [Concomitant]
     Active Substance: PENICILLIN V
     Dosage: 2000000 INTERNATIONAL UNIT, QD (1000000 IU, BID)
     Route: 048
     Dates: start: 201901
  15. PENICILLIN V [Concomitant]
     Active Substance: PENICILLIN V
     Dosage: UNK
     Route: 048
     Dates: start: 201901, end: 201901
  16. FUROSEMIDE [Concomitant]
     Active Substance: FUROSEMIDE
     Indication: Product used for unknown indication
     Dosage: 20 MILLIGRAM, QD
     Route: 065
  17. FUROSEMIDE [Concomitant]
     Active Substance: FUROSEMIDE
     Indication: Hypertension
     Dosage: UNK
     Route: 065
  18. BISOPROLOL FUMARATE [Concomitant]
     Active Substance: BISOPROLOL FUMARATE
     Indication: Product used for unknown indication
     Dosage: 25 MILLIGRAM, QD
     Route: 065

REACTIONS (19)
  - Thrombocytopenia [Recovering/Resolving]
  - Neutropenia [Recovered/Resolved]
  - Red blood cell schistocytes present [Unknown]
  - Haemolytic anaemia [Unknown]
  - Haptoglobin decreased [Unknown]
  - Blood lactate dehydrogenase increased [Unknown]
  - Renal failure [Recovering/Resolving]
  - Thrombotic microangiopathy [Recovered/Resolved]
  - Ductal adenocarcinoma of pancreas [Unknown]
  - Pericardial effusion [Unknown]
  - Malignant neoplasm progression [Unknown]
  - Blood pressure increased [Unknown]
  - Renal cyst [Unknown]
  - Hepatitis B core antibody positive [Unknown]
  - Hepatitis B surface antibody positive [Unknown]
  - Perinephric collection [Unknown]
  - Heart rate decreased [Unknown]
  - Oedema peripheral [Unknown]
  - Pleural effusion [Unknown]

NARRATIVE: CASE EVENT DATE: 20200128
